FAERS Safety Report 7218755-X (Version None)
Quarter: 2011Q1

REPORT INFORMATION
  Report Type: 
  Country: None (occurrence: None)
  Receive Date: 20110110
  Receipt Date: 20100406
  Transmission Date: 20110831
  Serious: No
  Sender: FDA-Public Use
  Company Number: US-ABBOTT-10P-163-0636667-00

PATIENT
  Sex: Female

DRUGS (2)
  1. VICODIN [Suspect]
     Indication: PAIN
  2. VICODIN [Suspect]
     Indication: UTERINE LEIOMYOMA
     Dosage: UNKNOWN

REACTIONS (1)
  - RASH [None]
